FAERS Safety Report 14249823 (Version 2)
Quarter: 2017Q4

REPORT INFORMATION
  Report Type: Spontaneous
  Country: JP (occurrence: JP)
  Receive Date: 20171205
  Receipt Date: 20171227
  Transmission Date: 20180321
  Serious: Yes (Death, Life-Threatening, Other)
  Sender: FDA-Public Use
  Company Number: JP-TAKEDA-2017TJP025859

PATIENT
  Age: 71 Year
  Sex: Male

DRUGS (2)
  1. VECTIBIX [Concomitant]
     Active Substance: PANITUMUMAB
     Dosage: UNK
     Route: 041
  2. TAKEPRON INTRAVENOUS 30MG. [Suspect]
     Active Substance: LANSOPRAZOLE
     Indication: PRODUCT USED FOR UNKNOWN INDICATION
     Dosage: UNK
     Route: 042
     Dates: start: 20171103, end: 20171127

REACTIONS (3)
  - Jaundice [Not Recovered/Not Resolved]
  - Sepsis [Fatal]
  - Colitis microscopic [Not Recovered/Not Resolved]
